FAERS Safety Report 20760816 (Version 1)
Quarter: 2022Q2

REPORT INFORMATION
  Report Type: Spontaneous
  Country: US (occurrence: US)
  Receive Date: 20220428
  Receipt Date: 20220428
  Transmission Date: 20220721
  Serious: No
  Sender: FDA-Public Use
  Company Number: US-TEVA-2022-US-2025474

PATIENT
  Sex: Female

DRUGS (1)
  1. IVERMECTIN [Suspect]
     Active Substance: IVERMECTIN
     Dosage: 45 G
     Route: 065

REACTIONS (4)
  - Headache [Unknown]
  - Eye discharge [Unknown]
  - Eye irritation [Unknown]
  - Product odour abnormal [Unknown]
